FAERS Safety Report 5981515-1 (Version None)
Quarter: 2008Q4

REPORT INFORMATION
  Report Type: 
  Country: None (occurrence: None)
  Receive Date: 20081202
  Receipt Date: 20081117
  Transmission Date: 20090506
  Serious: Yes (Hospitalization)
  Sender: FDA-Public Use
  Company Number: KV200800270

PATIENT
  Age: 89 Year
  Sex: Female

DRUGS (5)
  1. PROPAFENONE HYDROCHLORIDE [Suspect]
     Indication: ATRIAL FIBRILLATION
     Dosage: 150 MG, BID, ORAL
     Route: 048
     Dates: start: 20000201, end: 20080319
  2. LASIX [Concomitant]
  3. MONOPRIL [Concomitant]
  4. MOTRIN [Concomitant]
  5. GAS X (SIMETICONE) [Concomitant]

REACTIONS (5)
  - ABNORMAL BEHAVIOUR [None]
  - ATRIAL FIBRILLATION [None]
  - HYPOTENSION [None]
  - PRODUCT QUALITY ISSUE [None]
  - PULSE ABNORMAL [None]
